FAERS Safety Report 5248631-3 (Version None)
Quarter: 2007Q1

REPORT INFORMATION
  Report Type: 
  Country: None (occurrence: None)
  Receive Date: 20070222
  Receipt Date: 20070214
  Transmission Date: 20070707
  Serious: Yes (Hospitalization)
  Sender: FDA-Public Use
  Company Number: 2007-00809

PATIENT
  Age: 33 Year
  Sex: Female

DRUGS (2)
  1. PROGESTERONE IN OIL INJ [Suspect]
     Indication: IN VITRO FERTILISATION
     Dosage: 50 MG, DAILY, INTRAMUSCULAR
     Route: 030
     Dates: start: 20060101, end: 20060101
  2. ESTRADIOL VALERATE (ESTRADIOL VALERATE) INJECTION [Concomitant]

REACTIONS (1)
  - ALVEOLITIS ALLERGIC [None]
